FAERS Safety Report 8204225-9 (Version None)
Quarter: 2012Q1

REPORT INFORMATION
  Report Type: 
  Country: None (occurrence: None)
  Receive Date: 20120313
  Receipt Date: 20120308
  Transmission Date: 20120608
  Serious: Yes (Other)
  Sender: FDA-Public Use
  Company Number: CN-BAYER-2012-020212

PATIENT
  Age: 87 Year
  Sex: Female

DRUGS (4)
  1. AVELOX [Suspect]
     Indication: LUNG INFECTION
     Dosage: 0.4 G, QD
     Route: 048
     Dates: start: 20110407, end: 20110407
  2. AVELOX [Suspect]
     Dosage: 400 MG, QD
     Route: 042
     Dates: start: 20110408, end: 20110409
  3. AMLODIPINE [Concomitant]
     Indication: HYPERTENSION
     Dosage: 5 MG, QD
  4. AVELOX [Suspect]
     Dosage: UNK UNK, QD
     Route: 042

REACTIONS (7)
  - MENTAL DISORDER [None]
  - RESTLESSNESS [None]
  - ALTERED STATE OF CONSCIOUSNESS [None]
  - DEPRESSED MOOD [None]
  - CRYING [None]
  - AGITATION [None]
  - DELIRIUM [None]
